FAERS Safety Report 18377869 (Version 1)
Quarter: 2020Q4

REPORT INFORMATION
  Report Type: Spontaneous
  Country: US (occurrence: US)
  Receive Date: 20201013
  Receipt Date: 20201013
  Transmission Date: 20210114
  Serious: No
  Sender: FDA-Public Use
  Company Number: US-MYLANLABS-2020M1084546

PATIENT
  Sex: Female
  Weight: 64 kg

DRUGS (3)
  1. PROGESTERONE. [Concomitant]
     Active Substance: PROGESTERONE
     Dosage: UNK
     Route: 048
  2. TESTOSTERONE. [Concomitant]
     Active Substance: TESTOSTERONE
     Dosage: UNK
     Route: 061
  3. ESTRADIOL TRANSDERMAL SYSTEM [Suspect]
     Active Substance: ESTRADIOL
     Indication: HOT FLUSH
     Dosage: BIWEEKLY (TRANSDERMAL PATCH CHANGED TWICE)
     Route: 062
     Dates: start: 202009

REACTIONS (3)
  - Hot flush [Unknown]
  - Product adhesion issue [Unknown]
  - Drug ineffective [Unknown]
